FAERS Safety Report 23150475 (Version 2)
Quarter: 2023Q4

REPORT INFORMATION
  Report Type: Spontaneous
  Country: JP (occurrence: JP)
  Receive Date: 20231106
  Receipt Date: 20231109
  Transmission Date: 20240109
  Serious: Yes (Other)
  Sender: FDA-Public Use
  Company Number: JP-PFIZER INC-PV202300169362

PATIENT
  Age: 46 Year
  Sex: Female
  Weight: 70 kg

DRUGS (7)
  1. IBRANCE [Suspect]
     Active Substance: PALBOCICLIB
     Indication: Breast cancer
     Dosage: 125 MG, 1X/DAY
     Route: 048
     Dates: start: 20220928, end: 20230214
  2. IBRANCE [Suspect]
     Active Substance: PALBOCICLIB
     Dosage: 100 MG
     Route: 048
     Dates: start: 20230215, end: 20230926
  3. FASLODEX [Concomitant]
     Active Substance: FULVESTRANT
     Indication: Breast cancer
     Dosage: 500 MG
     Route: 030
  4. ONEALFA [Concomitant]
     Active Substance: ALFACALCIDOL
     Indication: Chemotherapy side effect prophylaxis
     Dosage: 0.5 UG, 1X/DAY
     Route: 048
     Dates: start: 20220928
  5. CALCIUM LACTATE [Concomitant]
     Active Substance: CALCIUM LACTATE
     Indication: Chemotherapy side effect prophylaxis
     Dosage: 1 G, 3X/DAY
     Route: 048
     Dates: start: 20220928
  6. DENOSUMAB [Concomitant]
     Active Substance: DENOSUMAB
     Indication: Metastases to bone
     Dosage: 120 MG
     Route: 058
     Dates: start: 20220909
  7. LEUPLIN [Concomitant]
     Active Substance: LEUPROLIDE ACETATE
     Indication: Breast cancer female
     Dosage: 11.25 MG
     Route: 058
     Dates: start: 20220909

REACTIONS (2)
  - Interstitial lung disease [Not Recovered/Not Resolved]
  - Neoplasm progression [Unknown]

NARRATIVE: CASE EVENT DATE: 20230901
